FAERS Safety Report 11793184 (Version 2)
Quarter: 2016Q1

REPORT INFORMATION
  Report Type: Report from Study
  Country: US (occurrence: US)
  Receive Date: 20151202
  Receipt Date: 20160122
  Transmission Date: 20160525
  Serious: Yes (Hospitalization)
  Sender: FDA-Public Use
  Company Number: US-MALLINCKRODT-T201505386

PATIENT
  Age: 54 Year
  Sex: Female

DRUGS (4)
  1. RITUXAN [Concomitant]
     Active Substance: RITUXIMAB
  2. SOTALOL. [Concomitant]
     Active Substance: SOTALOL
  3. PREDNISONE. [Concomitant]
     Active Substance: PREDNISONE
  4. REPOSITORY CORTICOTROPIN INJECTION [Suspect]
     Active Substance: CORTICOTROPIN
     Indication: DERMATOMYOSITIS
     Dosage: 80 UNITS TWICE PER WEEK
     Route: 058
     Dates: start: 20150901, end: 201511

REACTIONS (3)
  - Hypertension [Not Recovered/Not Resolved]
  - Heart rate increased [Recovered/Resolved]
  - Atrial fibrillation [Recovered/Resolved]

NARRATIVE: CASE EVENT DATE: 20151117
